FAERS Safety Report 16124619 (Version 2)
Quarter: 2019Q2

REPORT INFORMATION
  Report Type: Report from Study
  Country: US (occurrence: US)
  Receive Date: 20190327
  Receipt Date: 20190415
  Transmission Date: 20190711
  Serious: Yes (Hospitalization)
  Sender: FDA-Public Use
  Company Number: US-MYLANLABS-2019M1027931

PATIENT
  Age: 5 Year
  Sex: Male
  Weight: 19.9 kg

DRUGS (29)
  1. DACTINOMYCIN [Suspect]
     Active Substance: DACTINOMYCIN
     Indication: EMBRYONAL RHABDOMYOSARCOMA
     Dosage: 0.05 MILLIGRAM PER KILOGRAM OVER 1-5 MINUTES, CYCLIC
     Route: 042
     Dates: start: 20180614
  2. VINCRISTINE SULFATE. [Suspect]
     Active Substance: VINCRISTINE SULFATE
     Dosage: 6.35 MILLIGRAM, TOTAL
     Route: 042
     Dates: start: 20190211
  3. TEMSIROLIMUS. [Suspect]
     Active Substance: TEMSIROLIMUS
     Dosage: 87.5 MILLIGRAM, TOTAL
     Route: 042
     Dates: start: 20190226
  4. CAMPTOSAR [Suspect]
     Active Substance: IRINOTECAN HYDROCHLORIDE
     Dosage: 251 MILLIGRAM, TOTAL
     Route: 042
     Dates: start: 20190120
  5. TEMSIROLIMUS. [Suspect]
     Active Substance: TEMSIROLIMUS
     Dosage: 10 MILLIGRAM/SQ. METER OVER 30-60 MIN CYCLIC DAYS, INTRAVENOUS
     Route: 042
     Dates: start: 20180717
  6. TEMSIROLIMUS. [Suspect]
     Active Substance: TEMSIROLIMUS
     Dosage: 10 MILLIGRAM/SQ. METER OVER 30-60 MIN CYCLIC DAYS, INTRAVENOUS
     Route: 042
     Dates: start: 20180808
  7. CYCLOPHOSPHAMIDE. [Suspect]
     Active Substance: CYCLOPHOSPHAMIDE
     Indication: EMBRYONAL RHABDOMYOSARCOMA
     Dosage: 1200 MILLIGRAM/SQ. METER OVER 60 MIN, CYCLIC,INTRAVENOUS
     Route: 042
     Dates: start: 20180614
  8. DACTINOMYCIN [Suspect]
     Active Substance: DACTINOMYCIN
     Dosage: 1 MILLIGRAM, TOTAL
     Route: 042
     Dates: start: 20190211
  9. VINCRISTINE SULFATE. [Suspect]
     Active Substance: VINCRISTINE SULFATE
     Indication: EMBRYONAL RHABDOMYOSARCOMA
     Dosage: 1.5 MG/M2 IV OVER 1 MINUTE, CYCLE,INTRAVENOUS
     Route: 042
     Dates: start: 20180614
  10. CAMPTOSAR [Suspect]
     Active Substance: IRINOTECAN HYDROCHLORIDE
     Dosage: 251 MILLIGRAM, TOTAL
     Route: 042
     Dates: start: 20190116
  11. TEMSIROLIMUS. [Suspect]
     Active Substance: TEMSIROLIMUS
     Dosage: 10 MILLIGRAM/SQ. METER OVER 30-60 MIN CYCLIC DAYS, INTRAVENOUS
     Route: 042
     Dates: start: 20180620
  12. TEMSIROLIMUS. [Suspect]
     Active Substance: TEMSIROLIMUS
     Dosage: 10 MILLIGRAM/SQ. METER OVER 30-60 MIN CYCLIC DAYS, INTRAVENOUS
     Route: 042
     Dates: start: 20180807
  13. TEMSIROLIMUS. [Suspect]
     Active Substance: TEMSIROLIMUS
     Dosage: 10 MILLIGRAM/SQ. METER OVER 30-60 MIN CYCLIC DAYS, INTRAVENOUS
     Route: 042
     Dates: start: 20190122
  14. TEMSIROLIMUS. [Suspect]
     Active Substance: TEMSIROLIMUS
     Dosage: 10 MILLIGRAM/SQ. METER OVER 30-60 MIN CYCLIC DAYS, INTRAVENOUS
     Route: 042
     Dates: start: 20190128
  15. TEMSIROLIMUS. [Suspect]
     Active Substance: TEMSIROLIMUS
     Indication: EMBRYONAL RHABDOMYOSARCOMA
     Dosage: 10 MILLIGRAM/SQ. METER OVER 30-60 MIN CYCLIC DAYS, INTRAVENOUS
     Route: 042
     Dates: start: 20180614
  16. TEMSIROLIMUS. [Suspect]
     Active Substance: TEMSIROLIMUS
     Dosage: 10 MILLIGRAM/SQ. METER OVER 30-60 MIN CYCLIC DAYS, INTRAVENOUS
     Route: 042
     Dates: start: 20180703
  17. TEMSIROLIMUS. [Suspect]
     Active Substance: TEMSIROLIMUS
     Dosage: 10 MILLIGRAM/SQ. METER OVER 30-60 MIN CYCLIC DAYS, INTRAVENOUS
     Route: 042
     Dates: start: 20180626
  18. TEMSIROLIMUS. [Suspect]
     Active Substance: TEMSIROLIMUS
     Dosage: 10 MILLIGRAM/SQ. METER OVER 30-60 MIN CYCLIC DAYS, INTRAVENOUS
     Route: 042
     Dates: start: 20180724
  19. TEMSIROLIMUS. [Suspect]
     Active Substance: TEMSIROLIMUS
     Dosage: 10 MILLIGRAM/SQ. METER OVER 30-60 MIN CYCLIC DAYS, INTRAVENOUS
     Route: 042
     Dates: start: 20180821
  20. TEMSIROLIMUS. [Suspect]
     Active Substance: TEMSIROLIMUS
     Dosage: 10 MILLIGRAM/SQ. METER OVER 30-60 MIN CYCLIC DAYS, INTRAVENOUS
     Route: 042
     Dates: start: 20180830
  21. TEMSIROLIMUS. [Suspect]
     Active Substance: TEMSIROLIMUS
     Dosage: 10 MILLIGRAM/SQ. METER OVER 30-60 MIN CYCLIC DAYS, INTRAVENOUS
     Route: 042
     Dates: start: 20190116
  22. TEMSIROLIMUS. [Suspect]
     Active Substance: TEMSIROLIMUS
     Dosage: 10 MILLIGRAM/SQ. METER OVER 30-60 MIN CYCLIC DAYS, INTRAVENOUS
     Route: 042
     Dates: start: 20190211
  23. VINCRISTINE SULFATE. [Suspect]
     Active Substance: VINCRISTINE SULFATE
     Dosage: 251 MILLIGRAM, TOTAL
     Route: 042
     Dates: start: 20190116
  24. TEMSIROLIMUS. [Suspect]
     Active Substance: TEMSIROLIMUS
     Dosage: 10 MILLIGRAM/SQ. METER OVER 30-60 MIN CYCLIC DAYS, INTRAVENOUS
     Route: 042
     Dates: start: 20180707
  25. TEMSIROLIMUS. [Suspect]
     Active Substance: TEMSIROLIMUS
     Dosage: 10 MILLIGRAM/SQ. METER OVER 30-60 MIN CYCLIC DAYS, INTRAVENOUS
     Route: 042
     Dates: start: 20180731
  26. TEMSIROLIMUS. [Suspect]
     Active Substance: TEMSIROLIMUS
     Dosage: 10 MILLIGRAM/SQ. METER OVER 30-60 MIN CYCLIC DAYS, INTRAVENOUS
     Route: 042
     Dates: start: 20180814
  27. CAMPTOSAR [Suspect]
     Active Substance: IRINOTECAN HYDROCHLORIDE
     Indication: EMBRYONAL RHABDOMYOSARCOMA
     Dosage: 50 MILLIGRAM/SQ. METER,OVER 90 MINUTES CYCLIC DAYS, INTRAVENOUS
     Route: 042
     Dates: start: 2018
  28. TEMSIROLIMUS. [Suspect]
     Active Substance: TEMSIROLIMUS
     Dosage: 10 MILLIGRAM/SQ. METER OVER 30-60 MIN CYCLIC DAYS, INTRAVENOUS
     Route: 042
     Dates: start: 20190218
  29. BACTRIM [Concomitant]
     Active Substance: SULFAMETHOXAZOLE\TRIMETHOPRIM
     Indication: ANTIFUNGAL PROPHYLAXIS
     Dosage: UNK
     Dates: start: 20180614

REACTIONS (3)
  - Cystitis noninfective [Recovering/Resolving]
  - Haematuria [Recovering/Resolving]
  - Penile pain [Recovering/Resolving]

NARRATIVE: CASE EVENT DATE: 20180227
